FAERS Safety Report 6364654-5 (Version None)
Quarter: 2009Q3

REPORT INFORMATION
  Report Type: 
  Country: None (occurrence: None)
  Receive Date: 20090919
  Receipt Date: 20090724
  Transmission Date: 20100115
  Serious: No
  Sender: FDA-Public Use
  Company Number: US-ABBOTT-09P-163-0588096-00

PATIENT
  Sex: Male
  Weight: 61.29 kg

DRUGS (8)
  1. HUMIRA [Suspect]
     Indication: RHEUMATOID ARTHRITIS
     Dates: start: 20070101
  2. METHOTREXATE [Concomitant]
     Indication: RHEUMATOID ARTHRITIS
  3. MORPHINE [Concomitant]
     Indication: PAIN
  4. PREDNISONE [Concomitant]
     Indication: RHEUMATOID ARTHRITIS
  5. METOCLOPRAMIDE [Concomitant]
     Indication: GASTROOESOPHAGEAL REFLUX DISEASE
  6. OMEPRAZOLE [Concomitant]
     Indication: OESOPHAGEAL SPASM
  7. OLANZAPINE [Concomitant]
     Indication: ANXIOLYTIC THERAPY
  8. CITALOPRAM HYDROBROMIDE [Concomitant]
     Indication: ANXIOLYTIC THERAPY

REACTIONS (1)
  - DYSENTERY [None]
